FAERS Safety Report 15295840 (Version 1)
Quarter: 2018Q3

REPORT INFORMATION
  Report Type: Spontaneous
  Country: FR (occurrence: FR)
  Receive Date: 20180820
  Receipt Date: 20180820
  Transmission Date: 20181010
  Serious: Yes (Death, Other)
  Sender: FDA-Public Use
  Company Number: FR-MYLANLABS-2018M1061385

PATIENT
  Age: 5 Decade
  Sex: Male

DRUGS (9)
  1. BLEOMYCIN [Suspect]
     Active Substance: BLEOMYCIN SULFATE
     Indication: TESTICULAR SEMINOMA (PURE) STAGE II
     Dosage: FOUR CYCLES OF SYSTEMIC CHEMOTHERAPY
     Route: 065
     Dates: start: 201404
  2. ETOPOSIDE. [Suspect]
     Active Substance: ETOPOSIDE
     Indication: TESTICULAR SEMINOMA (PURE) STAGE II
     Dosage: FOUR CYCLES OF SYSTEMIC CHEMOTHERAPY
     Route: 065
     Dates: start: 201404
  3. CISPLATIN. [Suspect]
     Active Substance: CISPLATIN
     Indication: TESTICULAR SEMINOMA (PURE) STAGE II
     Dosage: FOUR CYCLES OF SYSTEMIC CHEMOTHERAPY
     Route: 065
     Dates: start: 201404
  4. CYTARABINE. [Suspect]
     Active Substance: CYTARABINE
     Indication: ACUTE MYELOID LEUKAEMIA
  5. CYTARABINE. [Suspect]
     Active Substance: CYTARABINE
     Indication: CHLOROMA
  6. IDARUBICIN [Suspect]
     Active Substance: IDARUBICIN
     Indication: ACUTE MYELOID LEUKAEMIA
  7. IDARUBICIN [Suspect]
     Active Substance: IDARUBICIN
     Indication: CHLOROMA
  8. CYTARABINE. [Suspect]
     Active Substance: CYTARABINE
     Indication: PERITONEAL SARCOMA
     Dosage: HIGH DOSE
     Route: 065
  9. IDARUBICIN [Suspect]
     Active Substance: IDARUBICIN
     Indication: PERITONEAL SARCOMA
     Dosage: HIGH DOSE
     Route: 065

REACTIONS (7)
  - Thrombocytopenia [Fatal]
  - Subdural haemorrhage [Fatal]
  - Colitis [Fatal]
  - Pneumonia [Fatal]
  - Peritoneal sarcoma [Unknown]
  - Acute myeloid leukaemia [Unknown]
  - Chloroma [Unknown]
